FAERS Safety Report 20565682 (Version 3)
Quarter: 2022Q3

REPORT INFORMATION
  Report Type: Spontaneous
  Country: JP (occurrence: JP)
  Receive Date: 20220308
  Receipt Date: 20220705
  Transmission Date: 20221026
  Serious: No
  Sender: FDA-Public Use
  Company Number: JP-GLAXOSMITHKLINE-JP2022JPN039505

PATIENT

DRUGS (3)
  1. SOTROVIMAB [Suspect]
     Active Substance: SOTROVIMAB
     Indication: COVID-19
     Dosage: 500 MG/DAY
     Route: 042
     Dates: start: 20220228, end: 20220228
  2. ASPIRIN [Suspect]
     Active Substance: ASPIRIN
     Indication: Protein S abnormal
     Dosage: 100 MG/DAY
     Route: 048
  3. COMIRNATY [Suspect]
     Active Substance: TOZINAMERAN
     Indication: COVID-19 prophylaxis
     Dosage: 0.3 ML/DAY
     Route: 030

REACTIONS (2)
  - Exposure during pregnancy [Unknown]
  - Live birth [Unknown]
